FAERS Safety Report 9537935 (Version 2)
Quarter: 2013Q3

REPORT INFORMATION
  Report Type: Spontaneous
  Country: IT (occurrence: IT)
  Receive Date: 20130919
  Receipt Date: 20130919
  Transmission Date: 20140515
  Serious: Yes (Other)
  Sender: FDA-Public Use
  Company Number: IT-CELGENEUS-083-20785-13090462

PATIENT
  Sex: 0

DRUGS (1)
  1. THALIDOMIDE CELGENE [Suspect]
     Indication: PLASMA CELL MYELOMA
     Route: 048

REACTIONS (2)
  - General physical health deterioration [Unknown]
  - Immobilisation prolonged [Unknown]
